FAERS Safety Report 11270896 (Version 2)
Quarter: 2015Q3

REPORT INFORMATION
  Report Type: Spontaneous
  Country: US (occurrence: US)
  Receive Date: 20150714
  Receipt Date: 20150824
  Transmission Date: 20151125
  Serious: Yes (Disabling)
  Sender: FDA-Public Use
  Company Number: US-BAYER-2015-378160

PATIENT
  Age: 24 Year
  Sex: Female
  Weight: 50.79 kg

DRUGS (6)
  1. NORCO [Concomitant]
     Active Substance: ACETAMINOPHEN\HYDROCODONE BITARTRATE
     Indication: PAIN
     Dosage: 1 TABLET EVERY 3 HRS
     Dates: start: 20140614
  2. FERROUS SULFATE [Concomitant]
     Active Substance: FERROUS SULFATE\FERROUS SULFATE, DRIED
     Dosage: 325 MG, QD
     Dates: start: 20140717
  3. MIRENA [Suspect]
     Active Substance: LEVONORGESTREL
     Indication: CONTRACEPTION
     Dosage: 20 MCG/24HR, CONT
     Route: 015
     Dates: start: 20140731, end: 20140827
  4. CALTRATE + D [CALCIUM CARBONATE,COLECALCIFEROL] [Concomitant]
     Dosage: UNK UNK, QD
     Dates: start: 20140717
  5. COLACE [Concomitant]
     Active Substance: DOCUSATE SODIUM
     Dosage: 100 MG, QD
     Dates: start: 20140717
  6. IBUPROFEN. [Concomitant]
     Active Substance: IBUPROFEN
     Dosage: 800 MG, EVERY 8 HOURS
     Dates: start: 20140717

REACTIONS (7)
  - Uterine perforation [None]
  - Injury [None]
  - Pain [None]
  - Deformity [None]
  - Activities of daily living impaired [None]
  - General physical health deterioration [None]
  - Depression [None]

NARRATIVE: CASE EVENT DATE: 20140804
